FAERS Safety Report 16472896 (Version 3)
Quarter: 2020Q1

REPORT INFORMATION
  Report Type: Spontaneous
  Country: JP (occurrence: JP)
  Receive Date: 20190625
  Receipt Date: 20200114
  Transmission Date: 20200409
  Serious: Yes (Other)
  Sender: FDA-Public Use
  Company Number: JP-SAKK-2019SA166417AA

PATIENT
  Age: 77 Year
  Sex: Male

DRUGS (1)
  1. CLOPIDOGREL TABLETS 75MG [SANIK] [Suspect]
     Active Substance: CLOPIDOGREL BISULFATE
     Indication: TRANSIENT ISCHAEMIC ATTACK
     Route: 048

REACTIONS (5)
  - Diverticulitis [Unknown]
  - Plasma cells increased [Unknown]
  - Agranulocytosis [Unknown]
  - Neutrophil count decreased [Recovered/Resolved]
  - Pyrexia [Unknown]
